FAERS Safety Report 6344910-7 (Version None)
Quarter: 2009Q3

REPORT INFORMATION
  Report Type: 
  Country: None (occurrence: None)
  Receive Date: 20090909
  Receipt Date: 20090826
  Transmission Date: 20100115
  Serious: Yes (Death)
  Sender: FDA-Public Use
  Company Number: US-RANBAXY-2009RR-27178

PATIENT
  Age: 49 Year
  Sex: Female

DRUGS (2)
  1. ISONIAZID [Suspect]
     Indication: DRUG USE FOR UNKNOWN INDICATION
     Route: 048
  2. FLUOXETINE [Suspect]
     Indication: DRUG USE FOR UNKNOWN INDICATION
     Route: 048

REACTIONS (3)
  - CARDIAC ARREST [None]
  - COMPLETED SUICIDE [None]
  - RESPIRATORY ARREST [None]
